FAERS Safety Report 8570226-4 (Version None)
Quarter: 2012Q3

REPORT INFORMATION
  Report Type: 
  Country: None (occurrence: None)
  Receive Date: 20120803
  Receipt Date: 20120722
  Transmission Date: 20120928
  Serious: Yes (Other)
  Sender: FDA-Public Use
  Company Number: FR-FRI-1000037618

PATIENT
  Sex: Male

DRUGS (1)
  1. ESCITALOPRAM [Suspect]

REACTIONS (5)
  - AGITATION [None]
  - INCREASED APPETITE [None]
  - TREMOR [None]
  - INITIAL INSOMNIA [None]
  - SKIN HAEMORRHAGE [None]
